FAERS Safety Report 6904224-0 (Version None)
Quarter: 2010Q3

REPORT INFORMATION
  Report Type: 
  Country: None (occurrence: None)
  Receive Date: 20100804
  Receipt Date: 20090325
  Transmission Date: 20110219
  Serious: No
  Sender: FDA-Public Use
  Company Number: US-PFIZER INC-2009152830

PATIENT
  Sex: Female
  Weight: 53.5 kg

DRUGS (2)
  1. LYRICA [Suspect]
     Indication: PAIN
     Dosage: 150 MG, 2X/DAY
     Route: 048
     Dates: start: 20081001
  2. DARVOCET-N 100 [Concomitant]
     Dosage: UNK
     Route: 048

REACTIONS (4)
  - GINGIVAL BLEEDING [None]
  - GINGIVAL SWELLING [None]
  - LIP SWELLING [None]
  - SWOLLEN TONGUE [None]
